FAERS Safety Report 8586131-3 (Version None)
Quarter: 2012Q3

REPORT INFORMATION
  Report Type: 
  Country: None (occurrence: None)
  Receive Date: 20120810
  Receipt Date: 20120727
  Transmission Date: 20120928
  Serious: Yes (Life-Threatening, Hospitalization)
  Sender: FDA-Public Use
  Company Number: DE-ROCHE-1086185

PATIENT
  Sex: Female
  Weight: 77 kg

DRUGS (4)
  1. PACLITAXEL [Suspect]
     Indication: BREAST CANCER
     Dosage: LAST DOSE PRIOR TO SAE: 02/JUL/2012
     Route: 042
     Dates: start: 20120507, end: 20120709
  2. DOXORUBICIN HCL [Suspect]
     Indication: BREAST CANCER
     Dosage: LAST DOSE PRIOR TO SAE: 02/JUL/2012
     Route: 042
     Dates: start: 20120507, end: 20120709
  3. LAPATINIB [Suspect]
     Indication: BREAST CANCER
     Dosage: LAST DOSE PRIOR TO SAE: 14/JUN/2012
     Route: 042
     Dates: start: 20120507
  4. HERCEPTIN [Suspect]
     Indication: BREAST CANCER
     Dosage: LAST DOSE PRIOR TO SAE: 18/JUN/2012
     Dates: start: 20120507, end: 20120709

REACTIONS (1)
  - PNEUMONIA CYTOMEGALOVIRAL [None]
